FAERS Safety Report 22312624 (Version 3)
Quarter: 2023Q2

REPORT INFORMATION
  Report Type: Spontaneous
  Country: US (occurrence: US)
  Receive Date: 20230512
  Receipt Date: 20230606
  Transmission Date: 20230722
  Serious: No
  Sender: FDA-Public Use
  Company Number: US-BoehringerIngelheim-2023-BI-237107

PATIENT
  Age: 92 Year
  Sex: Female

DRUGS (1)
  1. SPIRIVA HANDIHALER [Suspect]
     Active Substance: TIOTROPIUM BROMIDE MONOHYDRATE
     Indication: Emphysema
     Dosage: 2 INHALATIONS?ADDITIONAL EXP DATE: 06-AUG-2023

REACTIONS (3)
  - Intentional overdose [Unknown]
  - Drug delivery system malfunction [Unknown]
  - Product packaging quantity issue [Unknown]

NARRATIVE: CASE EVENT DATE: 20230510
